FAERS Safety Report 5720040-X (Version None)
Quarter: 2008Q2

REPORT INFORMATION
  Report Type: 
  Country: None (occurrence: None)
  Receive Date: 20080428
  Receipt Date: 20080423
  Transmission Date: 20081010
  Serious: Yes (Hospitalization)
  Sender: FDA-Public Use
  Company Number: HK-AVENTIS-200813310GDDC

PATIENT
  Age: 57 Year
  Sex: Female
  Weight: 55.7 kg

DRUGS (5)
  1. DOCETAXEL [Suspect]
     Indication: BREAST CANCER
     Route: 042
     Dates: start: 20080318, end: 20080318
  2. DEXAMETHASONE [Concomitant]
     Dosage: DOSE QUANTITY: 2
     Route: 048
     Dates: start: 20080318, end: 20080319
  3. FAMOTIDINE [Concomitant]
     Route: 048
     Dates: start: 20080318, end: 20080319
  4. METOCLOPRAMIDE [Concomitant]
     Route: 048
     Dates: start: 20080318, end: 20080320
  5. THYMOL M/WASH [Concomitant]
     Route: 002
     Dates: start: 20080318, end: 20080407

REACTIONS (3)
  - DYSURIA [None]
  - NEUTROPENIA [None]
  - PYREXIA [None]
